FAERS Safety Report 4820523-0 (Version None)
Quarter: 2005Q4

REPORT INFORMATION
  Report Type: 
  Country: None (occurrence: None)
  Receive Date: 20051104
  Receipt Date: 20051024
  Transmission Date: 20060501
  Serious: Yes (Hospitalization)
  Sender: FDA-Public Use
  Company Number: FR-GILEAD-2005-0008870

PATIENT
  Age: 46 Year
  Sex: Female

DRUGS (4)
  1. VIREAD [Suspect]
     Indication: HIV INFECTION
     Route: 048
     Dates: start: 20010209, end: 20050727
  2. COMBIVIR [Suspect]
     Indication: HIV INFECTION
     Route: 048
     Dates: end: 20050727
  3. DEPAMIDE [Suspect]
     Indication: AFFECTIVE DISORDER
     Route: 048
     Dates: end: 20050727
  4. ATHYMIL [Concomitant]

REACTIONS (5)
  - ANAEMIA [None]
  - ANAEMIA MACROCYTIC [None]
  - BONE MARROW MYELOGRAM ABNORMAL [None]
  - NEUTROPENIA [None]
  - WHITE BLOOD CELL COUNT DECREASED [None]
